FAERS Safety Report 23862951 (Version 1)
Quarter: 2024Q2

REPORT INFORMATION
  Report Type: Spontaneous
  Country: JP (occurrence: JP)
  Receive Date: 20240516
  Receipt Date: 20240516
  Transmission Date: 20240716
  Serious: Yes (Hospitalization, Other)
  Sender: FDA-Public Use
  Company Number: JP-AMNEAL PHARMACEUTICALS-2024-AMRX-01632

PATIENT
  Age: 61 Year
  Sex: Male

DRUGS (8)
  1. IMATINIB MESYLATE [Suspect]
     Active Substance: IMATINIB MESYLATE
     Indication: Gastrointestinal stromal tumour
     Dosage: 400 MILLIGRAM, DAILY FOR 7 MONTHS
     Route: 065
  2. BROMPERIDOL [Concomitant]
     Active Substance: BROMPERIDOL
     Indication: Product used for unknown indication
     Dosage: UNK
     Route: 065
  3. BIPERIDEN [Concomitant]
     Active Substance: BIPERIDEN
     Indication: Product used for unknown indication
     Dosage: UNK
     Route: 065
  4. CLOXAZOLAM [Concomitant]
     Active Substance: CLOXAZOLAM
     Indication: Product used for unknown indication
     Dosage: UNK
     Route: 065
  5. AROTINOLOL HYDROCHLORIDE [Concomitant]
     Active Substance: AROTINOLOL HYDROCHLORIDE
     Indication: Product used for unknown indication
     Dosage: UNK
     Route: 065
  6. FUROSEMIDE [Concomitant]
     Active Substance: FUROSEMIDE
     Indication: Product used for unknown indication
     Dosage: UNK
     Route: 065
  7. ASENAPINE [Concomitant]
     Active Substance: ASENAPINE
     Indication: Product used for unknown indication
     Route: 065
  8. BLONANSERIN [Concomitant]
     Active Substance: BLONANSERIN
     Indication: Antipsychotic therapy
     Dosage: UNK, TRANSDERMAL PATCH
     Route: 062

REACTIONS (11)
  - Acute psychosis [Recovered/Resolved]
  - Adrenocorticotropic hormone deficiency [Recovered/Resolved]
  - Adrenocortical insufficiency acute [Recovered/Resolved]
  - Delusion of reference [Recovered/Resolved]
  - Abulia [Recovered/Resolved]
  - Autism spectrum disorder [Recovered/Resolved]
  - Secondary adrenocortical insufficiency [Recovered/Resolved]
  - Hypophysitis [Recovered/Resolved]
  - Dry skin [Recovered/Resolved]
  - Pneumonia aspiration [Recovered/Resolved]
  - Sepsis [Recovered/Resolved]
